FAERS Safety Report 10405329 (Version 2)
Quarter: 2014Q3

REPORT INFORMATION
  Report Type: Spontaneous
  Country: CH (occurrence: None)
  Receive Date: 20140820
  Receipt Date: 20140829
  Transmission Date: 20150326
  Serious: Yes (Other)
  Sender: FDA-Public Use
  Company Number: 20140519

PATIENT
  Age: 69 Year
  Sex: Female
  Weight: 113 kg

DRUGS (2)
  1. FERINJECT [Suspect]
     Active Substance: FERRIC CARBOXYMALTOSE
     Indication: ANAEMIA
     Dosage: DILUTED IN 200 ML OF 0.9% NSS INTRAVENOUS DRIP
     Route: 041
     Dates: end: 20140716
  2. ERYTHROPOPOIETIN [Concomitant]

REACTIONS (8)
  - Paraesthesia [None]
  - Pruritus [None]
  - Angioedema [None]
  - Infusion related reaction [None]
  - Blood pressure fluctuation [None]
  - Cough [None]
  - Blood pressure decreased [None]
  - Pruritus generalised [None]

NARRATIVE: CASE EVENT DATE: 20140610
